FAERS Safety Report 15135984 (Version 1)
Quarter: 2018Q3

REPORT INFORMATION
  Report Type: Report from Study
  Country: US (occurrence: US)
  Receive Date: 20180712
  Receipt Date: 20180712
  Transmission Date: 20181010
  Serious: Yes (Hospitalization)
  Sender: FDA-Public Use
  Company Number: US-SA-2018SA161861

PATIENT
  Age: 27 Year
  Sex: Female

DRUGS (2)
  1. DUPILUMAB [Suspect]
     Active Substance: DUPILUMAB
     Dosage: 300 MG, QOW
     Route: 051
     Dates: start: 20180320
  2. DUPILUMAB [Suspect]
     Active Substance: DUPILUMAB
     Indication: DERMATITIS ATOPIC
     Dosage: 600 MG, 1X
     Route: 051

REACTIONS (13)
  - Disorientation [Unknown]
  - Syncope [Unknown]
  - Tremor [Unknown]
  - Chills [Unknown]
  - Photophobia [Not Recovered/Not Resolved]
  - Hypoaesthesia [Unknown]
  - Hypersensitivity [Unknown]
  - Back injury [Unknown]
  - Weight decreased [Unknown]
  - Head injury [Unknown]
  - Vomiting [Unknown]
  - Lacrimation increased [Not Recovered/Not Resolved]
  - Pallor [Unknown]

NARRATIVE: CASE EVENT DATE: 20180626
